FAERS Safety Report 24301186 (Version 3)
Quarter: 2024Q4

REPORT INFORMATION
  Report Type: Report from Study
  Country: US (occurrence: US)
  Receive Date: 20240910
  Receipt Date: 20241021
  Transmission Date: 20250115
  Serious: Yes (Hospitalization)
  Sender: ROCHE
  Company Number: US-ROCHE-10000076056

PATIENT
  Age: 52 Year
  Sex: Female

DRUGS (34)
  1. OCRELIZUMAB [Suspect]
     Active Substance: OCRELIZUMAB
     Indication: Multiple sclerosis
     Route: 042
     Dates: start: 20201215
  2. OCRELIZUMAB [Suspect]
     Active Substance: OCRELIZUMAB
     Route: 042
     Dates: start: 20201229
  3. OCRELIZUMAB [Suspect]
     Active Substance: OCRELIZUMAB
     Route: 042
     Dates: start: 20210702
  4. OCRELIZUMAB [Suspect]
     Active Substance: OCRELIZUMAB
     Route: 042
     Dates: start: 20220726
  5. OCRELIZUMAB [Suspect]
     Active Substance: OCRELIZUMAB
     Route: 042
     Dates: start: 20230206
  6. OCRELIZUMAB [Suspect]
     Active Substance: OCRELIZUMAB
     Route: 042
     Dates: start: 20231010
  7. FLUCONAZOLE [Concomitant]
     Active Substance: FLUCONAZOLE
  8. ESOMEPRAZOLE [Concomitant]
     Active Substance: ESOMEPRAZOLE
  9. FEXOFENADINE [Concomitant]
     Active Substance: FEXOFENADINE HYDROCHLORIDE
  10. PREDNISONE [Concomitant]
     Active Substance: PREDNISONE
  11. BENZONATATE [Concomitant]
     Active Substance: BENZONATATE
  12. CEFDINIR [Concomitant]
     Active Substance: CEFDINIR
  13. BENZONATATE [Concomitant]
     Active Substance: BENZONATATE
  14. TIZANIDINE [Concomitant]
     Active Substance: TIZANIDINE
  15. ONDANSETRON [Concomitant]
     Active Substance: ONDANSETRON
  16. KETOROLAC [Concomitant]
     Active Substance: KETOROLAC TROMETHAMINE
  17. IOHEXOL [Concomitant]
     Active Substance: IOHEXOL
  18. PROVIGIL [Concomitant]
     Active Substance: MODAFINIL
  19. LANSOPRAZOLE [Concomitant]
     Active Substance: LANSOPRAZOLE
  20. SIMVASTATIN [Concomitant]
     Active Substance: SIMVASTATIN
  21. METHYLPREDNISOLONE SODIUM SUCCINATE [Concomitant]
     Active Substance: METHYLPREDNISOLONE SODIUM SUCCINATE
  22. Ergocalcifero [Concomitant]
  23. TRAMADOL [Concomitant]
     Active Substance: TRAMADOL
  24. OXCARBAZEPINE [Concomitant]
     Active Substance: OXCARBAZEPINE
  25. NORETHINDRONE [Concomitant]
     Active Substance: NORETHINDRONE
  26. MONTELUKAST [Concomitant]
     Active Substance: MONTELUKAST
  27. LEVOTHYROXINE [Concomitant]
     Active Substance: LEVOTHYROXINE
  28. IBUPROFEN [Concomitant]
     Active Substance: IBUPROFEN
  29. GABAPENTIN [Concomitant]
     Active Substance: GABAPENTIN
  30. DULOXETINE [Concomitant]
     Active Substance: DULOXETINE
  31. CYANOCOBALAMIN [Concomitant]
     Active Substance: CYANOCOBALAMIN
  32. CLONAZEPAM [Concomitant]
     Active Substance: CLONAZEPAM
  33. CETIRIZINE [Concomitant]
     Active Substance: CETIRIZINE HYDROCHLORIDE
  34. BACLOFEN [Concomitant]
     Active Substance: BACLOFEN

REACTIONS (1)
  - Atypical pneumonia [Recovered/Resolved]

NARRATIVE: CASE EVENT DATE: 20240422
